FAERS Safety Report 6969307-8 (Version None)
Quarter: 2010Q3

REPORT INFORMATION
  Report Type: 
  Country: None (occurrence: None)
  Receive Date: 20100907
  Receipt Date: 20100831
  Transmission Date: 20110219
  Serious: Yes (Life-Threatening, Hospitalization)
  Sender: FDA-Public Use
  Company Number: GR-SANOFI-AVENTIS-2010SA053067

PATIENT
  Sex: Female
  Weight: 90 kg

DRUGS (6)
  1. PLAVIX [Suspect]
     Indication: ACUTE CORONARY SYNDROME
     Route: 048
     Dates: start: 20090309
  2. LOPRESSOR [Concomitant]
     Indication: ACUTE CORONARY SYNDROME
     Dates: start: 20090309
  3. SALOSPIR [Concomitant]
     Indication: ACUTE CORONARY SYNDROME
     Dates: start: 20090309
  4. LIPITOR [Concomitant]
     Indication: ACUTE CORONARY SYNDROME
     Dates: start: 20090309
  5. CONTROLOC [Concomitant]
     Indication: PROPHYLAXIS
     Dates: start: 20090309
  6. CRESTOR [Concomitant]
     Indication: ACUTE CORONARY SYNDROME
     Dates: start: 20090309

REACTIONS (1)
  - ATRIAL FIBRILLATION [None]
